FAERS Safety Report 10560493 (Version 1)
Quarter: 2014Q4

REPORT INFORMATION
  Report Type: Spontaneous
  Country: US (occurrence: US)
  Receive Date: 20141103
  Receipt Date: 20141103
  Transmission Date: 20150529
  Serious: No
  Sender: FDA-Public Use
  Company Number: US-SA-2014SA011123

PATIENT
  Age: 41 Year
  Sex: Female
  Weight: 45.35 kg

DRUGS (1)
  1. LUMIZYME [Suspect]
     Active Substance: ALGLUCOSIDASE ALFA
     Indication: GLYCOGEN STORAGE DISEASE TYPE II
     Route: 042
     Dates: start: 20060911

REACTIONS (3)
  - Anxiety [Unknown]
  - Insomnia [Unknown]
  - Panic attack [Recovered/Resolved]

NARRATIVE: CASE EVENT DATE: 20140120
